FAERS Safety Report 9269364 (Version 1)
Quarter: 2013Q2

REPORT INFORMATION
  Report Type: Report from Study
  Country: US (occurrence: US)
  Receive Date: 20130503
  Receipt Date: 20130503
  Transmission Date: 20140414
  Serious: Yes (Other)
  Sender: FDA-Public Use
  Company Number: PHEH2013US009612

PATIENT
  Sex: Female

DRUGS (1)
  1. TOBI [Suspect]
     Dosage: UNK UKN, UNK

REACTIONS (2)
  - Road traffic accident [Unknown]
  - Back pain [Unknown]
